FAERS Safety Report 18580726 (Version 1)
Quarter: 2020Q4

REPORT INFORMATION
  Report Type: Report from Study
  Country: US (occurrence: US)
  Receive Date: 20201204
  Receipt Date: 20201204
  Transmission Date: 20210114
  Serious: Yes (Other)
  Sender: FDA-Public Use
  Company Number: US-BAYER-2020-205987

PATIENT
  Age: 66 Year
  Sex: Male

DRUGS (1)
  1. STIVARGA [Suspect]
     Active Substance: REGORAFENIB
     Indication: COLON CANCER
     Dosage: 160 MG, UNK
     Dates: start: 20200825

REACTIONS (3)
  - Tissue injury [Recovered/Resolved]
  - Decreased appetite [Recovering/Resolving]
  - Skin irritation [None]

NARRATIVE: CASE EVENT DATE: 202008
